FAERS Safety Report 8514160-4 (Version None)
Quarter: 2012Q3

REPORT INFORMATION
  Report Type: 
  Country: None (occurrence: None)
  Receive Date: 20120717
  Receipt Date: 20120703
  Transmission Date: 20120928
  Serious: Yes (Other)
  Sender: FDA-Public Use
  Company Number: VE-MYLANLABS-2012S1013686

PATIENT
  Age: 35 Year
  Sex: Female

DRUGS (4)
  1. PANTOPRAZOLE [Suspect]
     Indication: GASTRITIS
     Route: 065
  2. ALEVIAN DUO /06593801/ [Concomitant]
     Indication: ANAL FISSURE
     Route: 065
  3. MIRALAX /00754501/ [Concomitant]
     Route: 065
  4. DILTIAZEM [Concomitant]
     Route: 061

REACTIONS (1)
  - DERMATITIS EXFOLIATIVE [None]
